FAERS Safety Report 10206395 (Version 1)
Quarter: 2014Q2

REPORT INFORMATION
  Report Type: Spontaneous
  Country: CN (occurrence: CN)
  Receive Date: 20140530
  Receipt Date: 20140530
  Transmission Date: 20141212
  Serious: Yes (Other)
  Sender: FDA-Public Use
  Company Number: CN-ROCHE-1410715

PATIENT
  Age: 81 Year
  Sex: Female
  Weight: 69 kg

DRUGS (2)
  1. ROCEPHIN [Suspect]
     Indication: BILIARY TRACT INFECTION
     Route: 041
     Dates: start: 20131020, end: 20131023
  2. THYMOPETIDUM [Concomitant]
     Indication: IMMUNOMODULATORY THERAPY
     Route: 030
     Dates: start: 20131005, end: 20131023

REACTIONS (1)
  - Bone marrow failure [Recovering/Resolving]
